FAERS Safety Report 4521162-1 (Version None)
Quarter: 2004Q4

REPORT INFORMATION
  Report Type: 
  Country: None (occurrence: None)
  Receive Date: 20041208
  Receipt Date: 20041005
  Transmission Date: 20050328
  Serious: Yes (Hospitalization)
  Sender: FDA-Public Use
  Company Number: NZ-MERCK-0410NZL00033

PATIENT
  Sex: Female

DRUGS (3)
  1. VIOXX [Suspect]
     Route: 048
     Dates: start: 20020101
  2. ATORVASTATIN CALCIUM [Suspect]
     Route: 048
     Dates: start: 20020101, end: 20041001
  3. ATORVASTATIN CALCIUM [Suspect]
     Route: 048
     Dates: start: 20041001, end: 20041001

REACTIONS (2)
  - HEPATIC ENZYME ABNORMAL [None]
  - MYOCARDIAL INFARCTION [None]
